FAERS Safety Report 9164049 (Version 1)
Quarter: 2013Q1

REPORT INFORMATION
  Report Type: Report from Study
  Country: US (occurrence: US)
  Receive Date: 20130314
  Receipt Date: 20130314
  Transmission Date: 20140127
  Serious: No
  Sender: FDA-Public Use
  Company Number: US-009507513-1303USA003992

PATIENT
  Sex: Male

DRUGS (5)
  1. VICTRELIS [Suspect]
     Indication: CHRONIC HEPATITIS C
     Dosage: 800 MG, TID
     Route: 048
  2. PEGINTERFERON ALFA-2A [Suspect]
     Indication: CHRONIC HEPATITIS C
     Dosage: , PRE-FILLED SYRINGE180 MICROGRAM, QW
  3. PEGINTERFERON ALFA-2A [Suspect]
     Dosage: 135 MICROGRAM, QW, PRE-FILLED SYRINGE
  4. RIBAVIRIN [Suspect]
     Dosage: 1200 MG, QD
  5. RIBAVIRIN [Suspect]
     Dosage: 800 MG, QD

REACTIONS (4)
  - Anaemia [Unknown]
  - Fatigue [Unknown]
  - Dyspnoea [Unknown]
  - Weight increased [Unknown]
